FAERS Safety Report 6090638-0 (Version None)
Quarter: 2009Q1

REPORT INFORMATION
  Report Type: 
  Country: None (occurrence: None)
  Receive Date: 20090224
  Receipt Date: 20090114
  Transmission Date: 20090719
  Serious: No
  Sender: FDA-Public Use
  Company Number: US-ABBOTT-09P-163-0497868-00

PATIENT
  Sex: Male
  Weight: 108.96 kg

DRUGS (9)
  1. SIMCOR [Suspect]
     Indication: BLOOD TRIGLYCERIDES INCREASED
     Dosage: 500/20MG
     Route: 048
     Dates: start: 20081201
  2. BENAZEPRIL HYDROCHLORIDE [Concomitant]
     Indication: HYPERTENSION
     Route: 048
  3. AMLODIPINE [Concomitant]
     Indication: HYPERTENSION
     Route: 048
  4. ATENOLOL [Concomitant]
     Indication: HYPERTENSION
     Route: 048
  5. POTASSIUM CHLORIDE [Concomitant]
     Indication: MINERAL SUPPLEMENTATION
     Route: 048
  6. FUROSEMIDE [Concomitant]
     Indication: DIURETIC THERAPY
     Route: 048
  7. RELAFEN [Concomitant]
     Indication: ARTHRALGIA
     Route: 048
  8. HYDROCODONE [Concomitant]
     Indication: ARTHRALGIA
     Route: 048
  9. PROPOXYPHENE HCL CAP [Concomitant]
     Indication: ARTHRALGIA
     Route: 048

REACTIONS (2)
  - BACK PAIN [None]
  - DIARRHOEA [None]
